FAERS Safety Report 8617212-3 (Version None)
Quarter: 2012Q3

REPORT INFORMATION
  Report Type: 
  Country: None (occurrence: None)
  Receive Date: 20120823
  Receipt Date: 20120814
  Transmission Date: 20120928
  Serious: Yes (Hospitalization, Other)
  Sender: FDA-Public Use
  Company Number: US-ASTRAZENECA-2012SE57602

PATIENT
  Age: 49 Year
  Sex: Male

DRUGS (1)
  1. NEXIUM [Suspect]
     Route: 048

REACTIONS (4)
  - HYPERCOAGULATION [None]
  - RENAL DISORDER [None]
  - URINARY RETENTION [None]
  - ARTERIAL THROMBOSIS LIMB [None]
